FAERS Safety Report 17583150 (Version 1)
Quarter: 2020Q1

REPORT INFORMATION
  Report Type: Spontaneous
  Country: CN (occurrence: CN)
  Receive Date: 20200325
  Receipt Date: 20200325
  Transmission Date: 20200409
  Serious: Yes (Disabling)
  Sender: FDA-Public Use
  Company Number: CN-BAXTER-2020BAX006395

PATIENT
  Age: 66 Year
  Sex: Female
  Weight: 67.5 kg

DRUGS (5)
  1. ENDOXAN [Suspect]
     Active Substance: CYCLOPHOSPHAMIDE
     Indication: BREAST CANCER FEMALE
     Dosage: DAY 1, CYCLOPHOSPHAMIDE + 0.9% SODIUM CHLORIDE 100 ML
     Route: 041
     Dates: start: 20200225, end: 20200225
  2. 0.9% SODIUM CHLORIDE INJECTION [Suspect]
     Active Substance: SODIUM CHLORIDE
     Indication: MEDICATION DILUTION
     Dosage: DAY 1, CYCLOPHOSPHAMIDE 900 MG + 0.9% SODIUM CHLORIDE
     Route: 041
     Dates: start: 20200225, end: 20200225
  3. PIRARUBICIN HYDROCHLORIDE [Suspect]
     Active Substance: PIRARUBICIN HYDROCHLORIDE
     Indication: BREAST CANCER FEMALE
     Dosage: DAY 1, PIRARUBICIN HYDROCHLORIDE + 5 % GLUCOSE 100 ML
     Route: 041
     Dates: start: 20200225, end: 20200225
  4. 5% GLUCOSE  INJECTION [Suspect]
     Active Substance: DEXTROSE
     Indication: MEDICATION DILUTION
     Dosage: DAY1, PIRARUBICIN HYDROCHLORIDE 90 MG + 5 % GLUCOSE
     Route: 041
     Dates: start: 20200225, end: 20200225
  5. RECOMBINANT HUMAN GRANULOCYTE STIMULATING FACTOR [Concomitant]
     Indication: PROPHYLAXIS
     Dosage: THREE VIALS
     Route: 058

REACTIONS (1)
  - Bone marrow failure [Recovered/Resolved]

NARRATIVE: CASE EVENT DATE: 20200304
